FAERS Safety Report 7799335-4 (Version None)
Quarter: 2011Q4

REPORT INFORMATION
  Report Type: 
  Country: None (occurrence: None)
  Receive Date: 20111006
  Receipt Date: 20110926
  Transmission Date: 20120403
  Serious: Yes (Hospitalization)
  Sender: FDA-Public Use
  Company Number: NL-SANOFI-AVENTIS-2011SA044451

PATIENT
  Age: 81 Year
  Sex: Male
  Weight: 73 kg

DRUGS (12)
  1. ALLOPURINOL [Concomitant]
     Dates: end: 20110411
  2. DIURETICS [Concomitant]
     Dates: end: 20110411
  3. CALCIDOL [Concomitant]
  4. SULFACETAMIDE SODIUM [Concomitant]
  5. BUMETANIDE [Concomitant]
  6. DIURETICS [Concomitant]
     Dates: end: 20110408
  7. DRONEDARONE HCL [Suspect]
     Indication: ATRIAL FIBRILLATION
     Route: 048
     Dates: start: 20110404, end: 20110410
  8. SINTROM [Concomitant]
     Dosage: 7MG WEEKLY
  9. PANTOPRAZOLE [Concomitant]
  10. CARVEDILOL [Concomitant]
  11. ATORVASTATIN [Concomitant]
  12. MICARDIS [Concomitant]
     Dates: end: 20110411

REACTIONS (2)
  - CARDIAC FAILURE [None]
  - SYNCOPE [None]
